FAERS Safety Report 9387389 (Version 1)
Quarter: 2013Q3

REPORT INFORMATION
  Report Type: Spontaneous
  Country: US (occurrence: US)
  Receive Date: 20130708
  Receipt Date: 20130708
  Transmission Date: 20140515
  Serious: No
  Sender: FDA-Public Use
  Company Number: US-GLAXOSMITHKLINE-A1023083A

PATIENT
  Age: 21 Year
  Sex: Male
  Weight: 86.4 kg

DRUGS (2)
  1. POTIGA [Suspect]
     Indication: CONVULSION
     Dosage: 100MG THREE TIMES PER DAY
     Route: 048
     Dates: start: 20130109, end: 20130116
  2. UNSPECIFIED MEDICATIONS [Concomitant]

REACTIONS (1)
  - Aggression [Recovered/Resolved]
